FAERS Safety Report 4284934-7 (Version None)
Quarter: 2004Q1

REPORT INFORMATION
  Report Type: 
  Country: None (occurrence: None)
  Receive Date: 20040202
  Receipt Date: 20040122
  Transmission Date: 20041129
  Serious: Yes (Hospitalization)
  Sender: FDA-Public Use
  Company Number: US-JNJFOC-20040104506

PATIENT
  Age: 54 Year
  Sex: Male

DRUGS (3)
  1. DURAGESIC [Suspect]
     Indication: PAIN
     Dosage: 150 UG/HR, 1 IN 48 HOUR, TRANSDERMAL
     Route: 062
     Dates: start: 20021101
  2. ACTIQ [Concomitant]
  3. AFRIN (AFRIN /OLD FORM/) SPRAY [Concomitant]

REACTIONS (5)
  - FIBROMYALGIA [None]
  - GALLBLADDER DISORDER [None]
  - MUSCLE ATROPHY [None]
  - PANCREATITIS [None]
  - WEIGHT DECREASED [None]
